FAERS Safety Report 8473159-7 (Version None)
Quarter: 2012Q2

REPORT INFORMATION
  Report Type: 
  Country: None (occurrence: None)
  Receive Date: 20120627
  Receipt Date: 20120625
  Transmission Date: 20120825
  Serious: Yes (Other)
  Sender: FDA-Public Use
  Company Number: JP-PFIZER INC-2012128464

PATIENT
  Age: 74 Year
  Sex: Female

DRUGS (4)
  1. AMOBAN [Concomitant]
     Indication: INSOMNIA
     Route: 048
  2. ATARAX [Suspect]
     Indication: TENSION
     Dosage: 25 MG, DAILY
     Route: 048
     Dates: start: 20120520, end: 20120501
  3. ZOLPIDEM [Concomitant]
     Indication: INSOMNIA
     Route: 048
  4. TRIAZOLAM [Concomitant]
     Indication: INSOMNIA
     Dosage: UNK
     Route: 048

REACTIONS (2)
  - TONGUE PARALYSIS [None]
  - PARAESTHESIA ORAL [None]
